FAERS Safety Report 9486540 (Version 2)
Quarter: 2013Q4

REPORT INFORMATION
  Report Type: Spontaneous
  Country: GB (occurrence: None)
  Receive Date: 20130823
  Receipt Date: 20131112
  Transmission Date: 20140711
  Serious: Yes (Death, Life-Threatening, Hospitalization, Other)
  Sender: FDA-Public Use
  Company Number: AUR-APL-2013-06791

PATIENT
  Age: 83 Year
  Sex: Male
  Weight: 52.6 kg

DRUGS (6)
  1. DONEPEZIL [Suspect]
     Indication: DEMENTIA
     Route: 048
     Dates: end: 20130723
  2. AMITRIPTYLINE (AMITRIPTYLINE) [Concomitant]
  3. CALCICHEW D3 (LEKOVIT CA) [Concomitant]
  4. GANFORT (GANFORT) [Concomitant]
  5. PROPRANOLOL (PROPRANOLOL) [Concomitant]
  6. TRAMADOL (TRAMADOL) [Concomitant]

REACTIONS (1)
  - Duodenal ulcer haemorrhage [None]
